FAERS Safety Report 14841696 (Version 1)
Quarter: 2018Q2

REPORT INFORMATION
  Report Type: Report from Study
  Country: ES (occurrence: ES)
  Receive Date: 20180503
  Receipt Date: 20180503
  Transmission Date: 20180711
  Serious: Yes (Hospitalization)
  Sender: FDA-Public Use
  Company Number: ES-SA-2018SA118208

PATIENT
  Sex: Male

DRUGS (1)
  1. LEMTRADA [Suspect]
     Active Substance: ALEMTUZUMAB
     Route: 041
     Dates: start: 201711, end: 201711

REACTIONS (3)
  - Impetigo [Unknown]
  - Dermatitis [Unknown]
  - Pain [Unknown]

NARRATIVE: CASE EVENT DATE: 20180408
